FAERS Safety Report 7221677-1 (Version None)
Quarter: 2011Q1

REPORT INFORMATION
  Report Type: 
  Country: None (occurrence: None)
  Receive Date: 20110112
  Receipt Date: 20110107
  Transmission Date: 20110831
  Serious: Yes (Other)
  Sender: FDA-Public Use
  Company Number: GB-ROCHE-752005

PATIENT
  Age: 50 Year
  Sex: Female

DRUGS (2)
  1. HERCEPTIN [Suspect]
     Route: 042
     Dates: start: 20100601
  2. TAMOXIFEN CITRATE [Concomitant]

REACTIONS (1)
  - HYPOTHYROIDISM [None]
